FAERS Safety Report 18010524 (Version 1)
Quarter: 2020Q3

REPORT INFORMATION
  Report Type: Spontaneous
  Country: PL (occurrence: PL)
  Receive Date: 20200711
  Receipt Date: 20200711
  Transmission Date: 20201103
  Serious: Yes (Hospitalization)
  Sender: FDA-Public Use
  Company Number: NVSC2020PL161827

PATIENT
  Age: 69 Year
  Sex: Male

DRUGS (6)
  1. PACLITAXEL. [Suspect]
     Active Substance: PACLITAXEL
     Indication: LUNG SQUAMOUS CELL CARCINOMA STAGE IV
     Dosage: 500 MG/M2, Q3W
     Route: 042
     Dates: start: 20200228, end: 20200326
  2. CARBOPLATIN. [Suspect]
     Active Substance: CARBOPLATIN
     Dosage: UNK, Q3W (AUC OF 4 MG/ML/MIN)
     Route: 042
     Dates: start: 20200326
  3. CARBOPLATIN. [Suspect]
     Active Substance: CARBOPLATIN
     Dosage: UNK UNK, Q3W (AUC OF 4 MG/ML/MIN)
     Route: 042
     Dates: start: 20200416
  4. PACLITAXEL. [Suspect]
     Active Substance: PACLITAXEL
     Dosage: 160 MG/M2, TIW
     Route: 042
     Dates: start: 20200326
  5. CARBOPLATIN. [Suspect]
     Active Substance: CARBOPLATIN
     Indication: LUNG SQUAMOUS CELL CARCINOMA STAGE IV
     Dosage: UNK UNK, Q3W (AUC OF 5 MG/ML/MIN)
     Route: 042
     Dates: start: 20200228, end: 20200326
  6. PACLITAXEL. [Suspect]
     Active Substance: PACLITAXEL
     Dosage: 160 MG/M2, Q3W
     Route: 042
     Dates: start: 20200416

REACTIONS (2)
  - Diarrhoea [Recovered/Resolved]
  - Gastroenteritis [Recovered/Resolved]

NARRATIVE: CASE EVENT DATE: 20200308
